FAERS Safety Report 5406085-8 (Version None)
Quarter: 2007Q3

REPORT INFORMATION
  Report Type: 
  Country: None (occurrence: None)
  Receive Date: 20070802
  Receipt Date: 20070802
  Transmission Date: 20080115
  Serious: No
  Sender: FDA-Public Use
  Company Number: None

PATIENT
  Sex: Female

DRUGS (1)
  1. LOVENOX [Suspect]
     Dosage: 40MG
     Dates: start: 20070722

REACTIONS (2)
  - ACCIDENTAL NEEDLE STICK [None]
  - DEVICE MALFUNCTION [None]
